FAERS Safety Report 16110810 (Version 2)
Quarter: 2019Q2

REPORT INFORMATION
  Report Type: Report from Study
  Country: DK (occurrence: DK)
  Receive Date: 20190325
  Receipt Date: 20190418
  Transmission Date: 20190711
  Serious: Yes (Hospitalization)
  Sender: FDA-Public Use
  Company Number: DK-ROCHE-2277443

PATIENT
  Age: 76 Year
  Sex: Female
  Weight: 66.2 kg

DRUGS (3)
  1. RO 6870810 (BET INHIBITOR) [Suspect]
     Active Substance: RO-6870810
     Indication: DIFFUSE LARGE B-CELL LYMPHOMA
     Dosage: DATE OF MOST RECENT DOSE OF RO6870810 PRIOR TO AE ONSET 20/FEB/2019 AT 11:10 0.65 MG/KG?DATE OF MOST
     Route: 058
     Dates: start: 20190107
  2. RITUXIMAB. [Suspect]
     Active Substance: RITUXIMAB
     Indication: DIFFUSE LARGE B-CELL LYMPHOMA
     Dosage: DATE OF MOST RECENT DOSE OF RITUXIMAB PRIOR TO AE ONSET 20/FEB/2019 AT 12:10
     Route: 042
     Dates: start: 20190114
  3. VENETOCLAX. [Suspect]
     Active Substance: VENETOCLAX
     Indication: DIFFUSE LARGE B-CELL LYMPHOMA
     Dosage: DATE OF MOST RECENT DOSE OF VENETOCLAX PRIOR TO AE ONSET 20/FEB2019 AT 11:08  600 MG?DATE OF MOST RE
     Route: 048
     Dates: start: 20190107

REACTIONS (1)
  - Tachycardia [Not Recovered/Not Resolved]

NARRATIVE: CASE EVENT DATE: 20190301
